FAERS Safety Report 6567402-9 (Version None)
Quarter: 2010Q1

REPORT INFORMATION
  Report Type: 
  Country: None (occurrence: None)
  Receive Date: 20100202
  Receipt Date: 20100129
  Transmission Date: 20100710
  Serious: Yes (Death, Other)
  Sender: FDA-Public Use
  Company Number: PHHY2010FR05171

PATIENT
  Age: 78 Year
  Sex: Female

DRUGS (1)
  1. ACLASTA [Suspect]
     Indication: OSTEOPOROSIS
     Dosage: UNK
     Route: 042
     Dates: start: 20091101

REACTIONS (7)
  - CONDITION AGGRAVATED [None]
  - ESCHAR [None]
  - FEELING ABNORMAL [None]
  - MALIGNANT NEOPLASM PROGRESSION [None]
  - SKIN HYPERPIGMENTATION [None]
  - SKIN ODOUR ABNORMAL [None]
  - WOUND NECROSIS [None]
